FAERS Safety Report 8165652-1 (Version None)
Quarter: 2012Q1

REPORT INFORMATION
  Report Type: 
  Country: None (occurrence: None)
  Receive Date: 20120223
  Receipt Date: 20120223
  Transmission Date: 20120608
  Serious: No
  Sender: FDA-Public Use
  Company Number: None

PATIENT
  Age: 65 Year
  Sex: Male
  Weight: 92.9874 kg

DRUGS (1)
  1. ATORVASTATIN [Suspect]
     Indication: BLOOD CHOLESTEROL INCREASED
     Dosage: 20 MG 2X PER DAY ORAL
     Route: 048
     Dates: start: 20120131

REACTIONS (3)
  - DYSPNOEA [None]
  - DIZZINESS [None]
  - DISORIENTATION [None]
